FAERS Safety Report 8276120-0 (Version None)
Quarter: 2012Q2

REPORT INFORMATION
  Report Type: 
  Country: None (occurrence: None)
  Receive Date: 20120406
  Receipt Date: 20120329
  Transmission Date: 20120825
  Serious: Yes (Life-Threatening, Other)
  Sender: FDA-Public Use
  Company Number: ACO_29915_2012

PATIENT
  Sex: Female

DRUGS (4)
  1. BUTRANS [Suspect]
     Indication: PRODUCT USED FOR UNKNOWN INDICATION
     Dosage: 10 UG
  2. KLONOPIN [Concomitant]
  3. PERCOCET [Concomitant]
  4. ZANAFLEX [Suspect]
     Indication: PRODUCT USED FOR UNKNOWN INDICATION

REACTIONS (2)
  - RESPIRATORY ARREST [None]
  - RESPIRATORY DISTRESS [None]
